FAERS Safety Report 8360777-X (Version None)
Quarter: 2012Q2

REPORT INFORMATION
  Report Type: 
  Country: None (occurrence: None)
  Receive Date: 20120515
  Receipt Date: 20120510
  Transmission Date: 20120825
  Serious: Yes (Other)
  Sender: FDA-Public Use
  Company Number: JP-PFIZER INC-2012113730

PATIENT
  Age: 81 Year
  Sex: Female
  Weight: 86 kg

DRUGS (10)
  1. REBAMIPIDE [Concomitant]
     Dosage: UNK
  2. ATELEC [Concomitant]
     Dosage: UNK
  3. SIGMART [Concomitant]
     Dosage: UNK
  4. VITAMEDIN CAPSULE [Concomitant]
     Dosage: UNK
  5. PRODEC [Concomitant]
     Dosage: UNK
  6. AZEPTIN [Concomitant]
     Dosage: UNK
  7. ZYVOX [Suspect]
     Indication: CELLULITIS
     Dosage: 600 MG, 2X/DAY
     Route: 041
     Dates: start: 20120213, end: 20120310
  8. LANSOPRAZOLE [Concomitant]
     Dosage: UNK
  9. FUROSEMIDE [Concomitant]
     Dosage: UNK
  10. DOXAZOSIN MESYLATE [Concomitant]
     Dosage: UNK

REACTIONS (8)
  - TONGUE DISCOLOURATION [None]
  - PANCYTOPENIA [None]
  - GLOSSITIS [None]
  - CONSTIPATION [None]
  - COUGH [None]
  - DYSPNOEA [None]
  - ABDOMINAL DISTENSION [None]
  - HYPONATRAEMIA [None]
